FAERS Safety Report 6612127-4 (Version None)
Quarter: 2010Q1

REPORT INFORMATION
  Report Type: 
  Country: None (occurrence: None)
  Receive Date: 20100302
  Receipt Date: 20100302
  Transmission Date: 20100710
  Serious: Yes (Other)
  Sender: FDA-Public Use
  Company Number: None

PATIENT
  Age: 49 Year
  Sex: Male
  Weight: 92.9874 kg

DRUGS (1)
  1. NYSTATIN + TRIAMCINOLONE ACETONIDE [Suspect]
     Indication: FUNGAL INFECTION
     Dosage: THIN LAYER 3 X A DAY TOP J9038
     Route: 061
     Dates: start: 20100204, end: 20100210

REACTIONS (5)
  - APPLICATION SITE MASS [None]
  - APPLICATION SITE PAIN [None]
  - APPLICATION SITE PRURITUS [None]
  - APPLICATION SITE RASH [None]
  - APPLICATION SITE SWELLING [None]
